FAERS Safety Report 24750631 (Version 1)
Quarter: 2024Q4

REPORT INFORMATION
  Report Type: Report from Study
  Country: US (occurrence: US)
  Receive Date: 20241218
  Receipt Date: 20241218
  Transmission Date: 20250115
  Serious: Yes (Other)
  Sender: ABBVIE
  Company Number: US-ABBVIE-5998254

PATIENT
  Age: 32 Year
  Sex: Female
  Weight: 94 kg

DRUGS (9)
  1. HUMIRA [Suspect]
     Active Substance: ADALIMUMAB
     Indication: Rheumatoid arthritis
     Dosage: 40 MG FORM STRENGTH?CITRATE FREE
     Route: 058
     Dates: start: 20240410
  2. LOVAZA [Concomitant]
     Active Substance: OMEGA-3-ACID ETHYL ESTERS
     Indication: Blood cholesterol increased
  3. DEPLIN [Concomitant]
     Active Substance: LEVOMEFOLATE CALCIUM
     Indication: Bipolar II disorder
  4. BUSPAR [Concomitant]
     Active Substance: BUSPIRONE HYDROCHLORIDE
     Indication: Bipolar II disorder
  5. CAPLYTA [Concomitant]
     Active Substance: LUMATEPERONE
     Indication: Bipolar II disorder
  6. LAMICTAL [Concomitant]
     Active Substance: LAMOTRIGINE
     Indication: Bipolar II disorder
  7. CARAFATE [Concomitant]
     Active Substance: SUCRALFATE
     Indication: Diverticulitis
  8. ATIVAN [Concomitant]
     Active Substance: LORAZEPAM
     Indication: Bipolar II disorder
  9. ESTRADIOL [Concomitant]
     Active Substance: ESTRADIOL
     Indication: Hormone replacement therapy

REACTIONS (8)
  - Uterine prolapse [Recovered/Resolved]
  - Asthenia [Not Recovered/Not Resolved]
  - Fatigue [Not Recovered/Not Resolved]
  - Fibromyalgia [Not Recovered/Not Resolved]
  - Pain [Not Recovered/Not Resolved]
  - Peripheral swelling [Not Recovered/Not Resolved]
  - Swelling [Not Recovered/Not Resolved]
  - Swelling face [Not Recovered/Not Resolved]

NARRATIVE: CASE EVENT DATE: 20240101
